FAERS Safety Report 16256657 (Version 1)
Quarter: 2019Q2

REPORT INFORMATION
  Report Type: Spontaneous
  Country: US (occurrence: US)
  Receive Date: 20190430
  Receipt Date: 20190430
  Transmission Date: 20190711
  Serious: No
  Sender: FDA-Public Use
  Company Number: US-XTTRIUM LABORATORIES, INC-2066438

PATIENT
  Sex: Male

DRUGS (1)
  1. SCRUB CARE EXIDINE -4 CHG [Suspect]
     Active Substance: CHLORHEXIDINE GLUCONATE
     Indication: WOUND
     Route: 061

REACTIONS (2)
  - Vision blurred [Unknown]
  - Rash [Unknown]
